FAERS Safety Report 5858588-X (Version None)
Quarter: 2008Q3

REPORT INFORMATION
  Report Type: 
  Country: None (occurrence: None)
  Receive Date: 20080826
  Receipt Date: 20080814
  Transmission Date: 20090109
  Serious: Yes (Other)
  Sender: FDA-Public Use
  Company Number: FR-PFIZER INC-2008068679

PATIENT
  Sex: Female
  Weight: 72 kg

DRUGS (6)
  1. MARAVIROC [Suspect]
  2. NEVIRAPINE [Suspect]
  3. KALETRA [Concomitant]
     Indication: HIV TEST POSITIVE
     Route: 048
  4. COMBIVIR [Concomitant]
     Indication: HIV TEST POSITIVE
     Route: 048
  5. ENOXAPARIN SODIUM [Concomitant]
  6. CALCIUM FOLINATE [Concomitant]
     Route: 048

REACTIONS (1)
  - CYTOLYTIC HEPATITIS [None]
